FAERS Safety Report 23196880 (Version 1)
Quarter: 2023Q4

REPORT INFORMATION
  Report Type: Spontaneous
  Country: CH (occurrence: None)
  Receive Date: 20231117
  Receipt Date: 20231117
  Transmission Date: 20240110
  Serious: Yes (Other)
  Sender: FDA-Public Use
  Company Number: 2023A257413

PATIENT
  Age: 942 Month
  Sex: Female
  Weight: 63 kg

DRUGS (1)
  1. LYNPARZA [Suspect]
     Active Substance: OLAPARIB
     Indication: Ovarian cancer
     Dosage: 2 SEPARATED DOSES
     Route: 048
     Dates: start: 20230608, end: 20230831

REACTIONS (6)
  - Sarcoid-like reaction [Recovering/Resolving]
  - Nausea [Recovered/Resolved]
  - Fatigue [Recovered/Resolved]
  - Dyspnoea [Recovering/Resolving]
  - Cough [Recovering/Resolving]
  - Pneumonitis [Recovering/Resolving]

NARRATIVE: CASE EVENT DATE: 20230801
